FAERS Safety Report 13755522 (Version 1)
Quarter: 2017Q3

REPORT INFORMATION
  Report Type: Report from Study
  Country: US (occurrence: US)
  Receive Date: 20170714
  Receipt Date: 20170714
  Transmission Date: 20171127
  Serious: Yes (Other)
  Sender: FDA-Public Use
  Company Number: US-BRISTOL-MYERS SQUIBB COMPANY-BMS-2017-034694

PATIENT
  Sex: Female

DRUGS (1)
  1. ABATACEPT [Suspect]
     Active Substance: ABATACEPT
     Indication: RHEUMATOID ARTHRITIS
     Route: 042

REACTIONS (7)
  - Muscle spasms [Unknown]
  - Bone pain [Unknown]
  - Condition aggravated [Unknown]
  - Drug ineffective [Unknown]
  - Aspiration joint [Unknown]
  - Arthritis infective [Unknown]
  - Medial tibial stress syndrome [Unknown]
